FAERS Safety Report 13199714 (Version 1)
Quarter: 2017Q1

REPORT INFORMATION
  Report Type: Spontaneous
  Country: GB (occurrence: GB)
  Receive Date: 20170208
  Receipt Date: 20170208
  Transmission Date: 20170428
  Serious: Yes (Life-Threatening, Other)
  Sender: FDA-Public Use
  Company Number: PHHY2017GB015626

PATIENT
  Age: 61 Year
  Sex: Male

DRUGS (6)
  1. MIRABEGRON [Interacting]
     Active Substance: MIRABEGRON
     Dosage: 50 MG, QD
     Route: 065
     Dates: start: 20140512, end: 20140611
  2. RAMIPRIL. [Suspect]
     Active Substance: RAMIPRIL
     Indication: PRODUCT USED FOR UNKNOWN INDICATION
     Dosage: 10 MG, UNK
     Route: 065
  3. REGURIN [Concomitant]
     Active Substance: TROSPIUM CHLORIDE
     Route: 065
  4. AMLODIPINE [Concomitant]
     Active Substance: AMLODIPINE BESYLATE
     Indication: PRODUCT USED FOR UNKNOWN INDICATION
     Dosage: 5 MG, UNK
     Route: 065
  5. MIRABEGRON [Interacting]
     Active Substance: MIRABEGRON
     Indication: URGE INCONTINENCE
     Dosage: 50 MG, QD
     Route: 065
  6. REGURIN [Concomitant]
     Active Substance: TROSPIUM CHLORIDE
     Indication: URGE INCONTINENCE
     Dosage: 60 MG, QD
     Route: 065

REACTIONS (6)
  - Drug interaction [Unknown]
  - Hypokalaemia [Unknown]
  - Hypervolaemia [Recovering/Resolving]
  - Glycosuria [Unknown]
  - Hypertensive crisis [Recovering/Resolving]
  - Intentional product misuse [Unknown]

NARRATIVE: CASE EVENT DATE: 20140512
